FAERS Safety Report 23808039 (Version 1)
Quarter: 2024Q2

REPORT INFORMATION
  Report Type: Spontaneous
  Country: FR (occurrence: FR)
  Receive Date: 20240502
  Receipt Date: 20240502
  Transmission Date: 20240715
  Serious: Yes (Death, Hospitalization)
  Sender: FDA-Public Use
  Company Number: None

PATIENT
  Age: 94 Year
  Sex: Male
  Weight: 69 kg

DRUGS (10)
  1. SIMVASTATIN [Interacting]
     Active Substance: SIMVASTATIN
     Indication: Cardiovascular event prophylaxis
     Dates: end: 20240311
  2. FUCIDIN [Interacting]
     Active Substance: FUSIDATE SODIUM
     Indication: Wound infection bacterial
     Dosage: 250 MG, FILM-COATED TABLET
     Dates: start: 20240220, end: 20240311
  3. APIXABAN [Concomitant]
     Active Substance: APIXABAN
     Indication: Cardiovascular event prophylaxis
  4. TAMSULOSIN HYDROCHLORIDE [Concomitant]
     Active Substance: TAMSULOSIN HYDROCHLORIDE
     Indication: Benign prostatic hyperplasia
  5. KARDEGIC [Concomitant]
     Active Substance: ASPIRIN DL-LYSINE
     Indication: Cardiovascular event prophylaxis
     Dosage: 75 MG, POWDER FOR ORAL SOLUTION IN SACHET-DOSE
  6. FERROUS FUMARATE [Concomitant]
     Active Substance: FERROUS FUMARATE
     Indication: Iron deficiency
     Dosage: 66 MG, FILM-COATED TABLET
  7. AMIODARONE [Concomitant]
     Active Substance: AMIODARONE
     Indication: Arrhythmia
  8. FUROSEMIDE [Concomitant]
     Active Substance: FUROSEMIDE
     Indication: Ischaemic cardiomyopathy
  9. CYANOCOBALAMIN [Concomitant]
     Active Substance: CYANOCOBALAMIN
     Indication: Vitamin supplementation
  10. POTASSIUM CHLORIDE [Concomitant]
     Active Substance: POTASSIUM CHLORIDE
     Indication: Mineral supplementation
     Dosage: CAPSULE

REACTIONS (3)
  - Muscular weakness [Not Recovered/Not Resolved]
  - Labelled drug-drug interaction issue [Fatal]
  - Rhabdomyolysis [Fatal]

NARRATIVE: CASE EVENT DATE: 20240220
